FAERS Safety Report 10214402 (Version 3)
Quarter: 2014Q2

REPORT INFORMATION
  Report Type: Spontaneous
  Country: US (occurrence: US)
  Receive Date: 20140603
  Receipt Date: 20140617
  Transmission Date: 20141212
  Serious: Yes (Death, Hospitalization)
  Sender: FDA-Public Use
  Company Number: US-ACTELION-A-NJ2014-099691

PATIENT
  Age: 75 Year
  Sex: Male

DRUGS (2)
  1. VENTAVIS [Suspect]
     Indication: PULMONARY ARTERIAL HYPERTENSION
     Dosage: UNK
     Route: 055
     Dates: end: 20140609
  2. LETAIRIS [Concomitant]

REACTIONS (4)
  - Death [Fatal]
  - Haemorrhage [Not Recovered/Not Resolved]
  - Fluid overload [Not Recovered/Not Resolved]
  - Fluid retention [Unknown]
